FAERS Safety Report 25627908 (Version 1)
Quarter: 2025Q3

REPORT INFORMATION
  Report Type: 
  Country: US (occurrence: US)
  Receive Date: 20250731
  Receipt Date: 20250731
  Transmission Date: 20251021
  Serious: Yes (Hospitalization, Other)
  Sender: CB FLEET
  Company Number: US-PRESTIGE-202507-US-002333

PATIENT
  Age: 74 Year
  Sex: Female

DRUGS (3)
  1. PHENAZOPYRIDINE HYDROCHLORIDE [Suspect]
     Active Substance: PHENAZOPYRIDINE HYDROCHLORIDE
     Indication: Cystitis
     Route: 048
  2. PHENAZOPYRIDINE HYDROCHLORIDE [Suspect]
     Active Substance: PHENAZOPYRIDINE HYDROCHLORIDE
  3. OXYGEN [Concomitant]
     Active Substance: OXYGEN
     Route: 045

REACTIONS (1)
  - Sulphaemoglobinaemia [Recovered/Resolved]
